FAERS Safety Report 13075153 (Version 1)
Quarter: 2016Q4

REPORT INFORMATION
  Report Type: Report from Study
  Country: BR (occurrence: BR)
  Receive Date: 20161230
  Receipt Date: 20161230
  Transmission Date: 20170207
  Serious: Yes (Other)
  Sender: FDA-Public Use
  Company Number: PHHY2016BR160150

PATIENT
  Sex: Male
  Weight: 83 kg

DRUGS (3)
  1. BUFFERIN [Concomitant]
     Active Substance: ASPIRIN
     Indication: HYPERTENSION
     Dosage: 1 DF, QD
     Route: 048
  2. BUFFERIN [Concomitant]
     Active Substance: ASPIRIN
     Indication: PROPHYLAXIS
  3. DIOVAN HCT [Suspect]
     Active Substance: HYDROCHLOROTHIAZIDE\VALSARTAN
     Indication: HYPERTENSION
     Dosage: 1 DF (320 MG), QD
     Route: 048

REACTIONS (5)
  - Angioedema [Recovering/Resolving]
  - Urticaria [Recovering/Resolving]
  - Hypersensitivity [Unknown]
  - Emotional distress [Unknown]
  - Pruritus [Unknown]
